FAERS Safety Report 23979345 (Version 1)
Quarter: 2024Q2

REPORT INFORMATION
  Report Type: Spontaneous
  Country: CH (occurrence: CH)
  Receive Date: 20240615
  Receipt Date: 20240615
  Transmission Date: 20240716
  Serious: Yes (Life-Threatening, Hospitalization, Other)
  Sender: FDA-Public Use
  Company Number: None

PATIENT
  Age: 56 Year
  Sex: Female
  Weight: 72.4 kg

DRUGS (37)
  1. QUETIAPINE [Suspect]
     Active Substance: QUETIAPINE
     Indication: Product used for unknown indication
     Dosage: TIME INTERVAL: AS NECESSARY: AS NECESSARY, QUETIAPIN ACTAVIS
     Route: 065
  2. DICLOFENAC SODIUM [Concomitant]
     Active Substance: DICLOFENAC\DICLOFENAC SODIUM
     Indication: Product used for unknown indication
     Dosage: TIME INTERVAL: AS NECESSARY: (10MG/G)AS NECESSARY
     Route: 003
  3. DYMISTA [Concomitant]
     Active Substance: AZELASTINE HYDROCHLORIDE\FLUTICASONE PROPIONATE
     Indication: Product used for unknown indication
     Route: 065
  4. Optiderm [Concomitant]
     Indication: Product used for unknown indication
     Dosage: TIME INTERVAL: AS NECESSARY: AS NECESSARY
     Route: 003
  5. CALCIUM\CHOLECALCIFEROL [Concomitant]
     Active Substance: CALCIUM\CHOLECALCIFEROL
     Indication: Product used for unknown indication
     Dosage: 1000MG/800I.E.
     Route: 048
  6. PREGABALIN [Suspect]
     Active Substance: PREGABALIN
     Indication: Product used for unknown indication
     Route: 048
  7. MAGNESIUM ASPARTATE HYDROCHLORIDE [Concomitant]
     Active Substance: MAGNESIUM ASPARTATE HYDROCHLORIDE
     Indication: Product used for unknown indication
     Route: 048
  8. Transipeg [Concomitant]
     Indication: Product used for unknown indication
     Dosage: TIME INTERVAL: AS NECESSARY: AS NECESSARY
     Route: 048
  9. HERBALS\HOPS\VALERIAN [Concomitant]
     Active Substance: HERBALS\HOPS\VALERIAN
     Indication: Product used for unknown indication
     Dosage: TIME INTERVAL: AS NECESSARY: AS NECESSARY
     Route: 065
  10. VALIUM [Suspect]
     Active Substance: DIAZEPAM
     Indication: Product used for unknown indication
     Dosage: TIME INTERVAL: AS NECESSARY: AS NECESSARY
     Route: 048
  11. ESCHERICHIA COLI [Concomitant]
     Active Substance: ESCHERICHIA COLI
     Indication: Product used for unknown indication
     Route: 048
  12. NARATRIPTAN HYDROCHLORIDE [Concomitant]
     Active Substance: NARATRIPTAN HYDROCHLORIDE
     Indication: Product used for unknown indication
     Dosage: TIME INTERVAL: AS NECESSARY: AS NECESSARY. 2.5 MG
     Route: 048
  13. KCL HAUSMANN [Concomitant]
     Indication: Product used for unknown indication
     Route: 048
  14. THIAMINE HYDROCHLORIDE [Concomitant]
     Active Substance: THIAMINE HYDROCHLORIDE
     Indication: Product used for unknown indication
     Dosage: 100MG/ML
     Route: 042
     Dates: start: 20240516, end: 20240516
  15. THIAMINE HYDROCHLORIDE [Concomitant]
     Active Substance: THIAMINE HYDROCHLORIDE
     Indication: Product used for unknown indication
     Route: 048
  16. HYDROMORPHONE [Suspect]
     Active Substance: HYDROMORPHONE
     Indication: Product used for unknown indication
     Dosage: INTAKE MINIMUM TILL 24.04.2024
     Route: 048
  17. HYDROMORPHONE [Suspect]
     Active Substance: HYDROMORPHONE
     Indication: Product used for unknown indication
     Dosage: TIME INTERVAL: AS NECESSARY: MINIMUM TILL 24.04.2024 ; AS NECESSARY
     Route: 048
  18. BECOZYM-F [Concomitant]
     Indication: Product used for unknown indication
     Route: 065
  19. DUPIXENT [Concomitant]
     Active Substance: DUPILUMAB
     Indication: Product used for unknown indication
     Route: 058
  20. IALUGEN PLUS [Concomitant]
     Indication: Product used for unknown indication
     Dosage: TIME INTERVAL: AS NECESSARY: AS NECESSARY
     Route: 003
  21. Novalgin [Concomitant]
     Indication: Product used for unknown indication
     Route: 048
  22. EMLA [Concomitant]
     Active Substance: LIDOCAINE\PRILOCAINE
     Indication: Product used for unknown indication
     Dosage: TIME INTERVAL: AS NECESSARY: AS NECESSARY
     Route: 003
  23. MONOVO [Concomitant]
     Indication: Product used for unknown indication
     Dosage: TIME INTERVAL: AS NECESSARY: 1 MG/G ; AS NECESSARY
     Route: 003
  24. IMODIUM [Concomitant]
     Active Substance: LOPERAMIDE HYDROCHLORIDE
     Indication: Product used for unknown indication
     Route: 048
  25. BILASTINE [Concomitant]
     Active Substance: BILASTINE
     Indication: Product used for unknown indication
     Route: 048
  26. EDRONAX [Concomitant]
     Active Substance: REBOXETINE MESYLATE
     Indication: Product used for unknown indication
     Route: 065
  27. TORSEMIDE [Concomitant]
     Active Substance: TORSEMIDE
     Indication: Product used for unknown indication
     Route: 048
  28. CONCERTA [Concomitant]
     Active Substance: METHYLPHENIDATE HYDROCHLORIDE
     Indication: Product used for unknown indication
     Route: 048
  29. COLCHICINE [Concomitant]
     Active Substance: COLCHICINE
     Indication: Product used for unknown indication
     Route: 048
  30. HYDROMORPHONE HCL [Suspect]
     Active Substance: HYDROMORPHONE HYDROCHLORIDE
     Indication: Product used for unknown indication
     Dosage: TIME INTERVAL: AS NECESSARY: AS NECESSARY
     Route: 065
  31. NEBIVOLOL MEPHA [Concomitant]
     Indication: Product used for unknown indication
     Route: 048
  32. NALOXON ORPHA [Concomitant]
     Indication: Product used for unknown indication
     Dosage: 0.04 MG
     Route: 042
     Dates: start: 20240517, end: 20240517
  33. VITAMIN D3 [Concomitant]
     Active Substance: CHOLECALCIFEROL
     Indication: Product used for unknown indication
     Dosage: 4000 I.E./ML
     Route: 048
  34. COLOSAN [Concomitant]
     Indication: Product used for unknown indication
     Route: 065
  35. ESOMEPRAZOLE [Concomitant]
     Active Substance: ESOMEPRAZOLE
     Indication: Product used for unknown indication
     Route: 048
  36. COVERAM [Concomitant]
     Active Substance: AMLODIPINE\PERINDOPRIL
     Indication: Product used for unknown indication
     Route: 048
  37. DICLOFENAC EPOLAMINE\HEPARIN SODIUM [Concomitant]
     Active Substance: DICLOFENAC EPOLAMINE\HEPARIN SODIUM
     Indication: Product used for unknown indication
     Dosage: TIME INTERVAL: AS NECESSARY: AS NECESSARY
     Route: 003

REACTIONS (1)
  - Disturbance in attention [Recovering/Resolving]

NARRATIVE: CASE EVENT DATE: 20240413
